FAERS Safety Report 8615954-7 (Version None)
Quarter: 2012Q3

REPORT INFORMATION
  Report Type: 
  Country: None (occurrence: None)
  Receive Date: 20120823
  Receipt Date: 20120820
  Transmission Date: 20120928
  Serious: Yes (Hospitalization, Other)
  Sender: FDA-Public Use
  Company Number: CA-ROCHE-1104813

PATIENT
  Sex: Female
  Weight: 130 kg

DRUGS (12)
  1. ACTONEL [Concomitant]
  2. ACTEMRA [Suspect]
     Indication: RHEUMATOID ARTHRITIS
     Route: 042
     Dates: start: 20120610
  3. TYLENOL W/ CODEINE NO. 3 [Concomitant]
  4. ASCORBIC ACID [Concomitant]
  5. AMITRIPTYLINE HYDROCHLORIDE [Concomitant]
  6. HYDROCHLOROTHIAZIDE [Concomitant]
  7. VITAMIN E [Concomitant]
  8. PREDNISONE TAB [Concomitant]
  9. SULFASALAZINE [Concomitant]
  10. PERCOCET [Concomitant]
  11. PRIMROSE [Concomitant]
  12. ACTEMRA [Suspect]
     Route: 042
     Dates: start: 20100610

REACTIONS (5)
  - WHITE BLOOD CELL COUNT DECREASED [None]
  - PLATELET COUNT DECREASED [None]
  - NASAL CONGESTION [None]
  - HAEMORRHOIDAL HAEMORRHAGE [None]
  - HAEMOGLOBIN DECREASED [None]
